FAERS Safety Report 7084164-X (Version None)
Quarter: 2010Q4

REPORT INFORMATION
  Report Type: 
  Country: None (occurrence: None)
  Receive Date: 20101026
  Receipt Date: 20101014
  Transmission Date: 20110411
  Serious: Yes (Other)
  Sender: FDA-Public Use
  Company Number: 2010AP002123

PATIENT
  Age: 60 Year
  Sex: Male

DRUGS (18)
  1. CARBIDOPA + LEVODOPA [Suspect]
     Indication: PARKINSON'S DISEASE
     Dosage: ;BID;, ;TID;,BID, ;QID;
     Dates: start: 20060101, end: 20070301
  2. CARBIDOPA + LEVODOPA [Suspect]
     Indication: PARKINSON'S DISEASE
     Dosage: ;BID;, ;TID;,BID, ;QID;
     Dates: start: 20070301, end: 20080401
  3. CARBIDOPA + LEVODOPA [Suspect]
     Indication: PARKINSON'S DISEASE
     Dosage: ;BID;, ;TID;,BID, ;QID;
     Dates: start: 20080401, end: 20080501
  4. CARBIDOPA + LEVODOPA [Suspect]
     Indication: PARKINSON'S DISEASE
     Dosage: ;BID;, ;TID;,BID, ;QID;
     Dates: start: 20080501
  5. SELEGILINE HCL [Suspect]
     Indication: PARKINSON'S DISEASE
     Dosage: 5 MG; BID;
     Dates: start: 20020101, end: 20070801
  6. CARBIDOPA + LEVODOPA [Suspect]
     Indication: PARKINSON'S DISEASE
     Dosage: ;TID;, ;5XD;, ;BID;, ;QID;
     Dates: start: 20040101, end: 20050101
  7. CARBIDOPA + LEVODOPA [Suspect]
     Indication: PARKINSON'S DISEASE
     Dosage: ;TID;, ;5XD;, ;BID;, ;QID;
     Dates: start: 20050101, end: 20080401
  8. CARBIDOPA + LEVODOPA [Suspect]
     Indication: PARKINSON'S DISEASE
     Dosage: ;TID;, ;5XD;, ;BID;, ;QID;
     Dates: start: 20080401, end: 20080501
  9. CARBIDOPA + LEVODOPA [Suspect]
     Indication: PARKINSON'S DISEASE
     Dosage: ;TID;, ;5XD;, ;BID;, ;QID;
     Dates: start: 20080501, end: 20081201
  10. AMANTADINE [Suspect]
     Indication: PARKINSON'S DISEASE
     Dosage: 100 MG; BID;
     Dates: start: 20070101, end: 20081201
  11. PRAMIPEXOLE [Suspect]
     Indication: PARKINSON'S DISEASE
     Dosage: 0.25 MG; TID;, 1 MG; QID;, 1 MG; 5XD;, 5.5 MG; QD;
     Dates: start: 20010101, end: 20030101
  12. PRAMIPEXOLE [Suspect]
     Indication: PARKINSON'S DISEASE
     Dosage: 0.25 MG; TID;, 1 MG; QID;, 1 MG; 5XD;, 5.5 MG; QD;
     Dates: start: 20030101, end: 20071101
  13. PRAMIPEXOLE [Suspect]
     Indication: PARKINSON'S DISEASE
     Dosage: 0.25 MG; TID;, 1 MG; QID;, 1 MG; 5XD;, 5.5 MG; QD;
     Dates: start: 20071101, end: 20080101
  14. PRAMIPEXOLE [Suspect]
     Indication: PARKINSON'S DISEASE
     Dosage: 0.25 MG; TID;, 1 MG; QID;, 1 MG; 5XD;, 5.5 MG; QD;
     Dates: start: 20080101, end: 20081201
  15. ENTACAPONE [Suspect]
     Indication: PARKINSON'S DISEASE
     Dosage: 200 MG; 5XD;, 200 MG; QID;200 MG;5XD
     Dates: start: 20060101, end: 20070801
  16. ENTACAPONE [Suspect]
     Indication: PARKINSON'S DISEASE
     Dosage: 200 MG; 5XD;, 200 MG; QID;200 MG;5XD
     Dates: start: 20080101, end: 20080401
  17. ENTACAPONE [Suspect]
     Indication: PARKINSON'S DISEASE
     Dosage: 200 MG; 5XD;, 200 MG; QID;200 MG;5XD
     Dates: start: 20080401, end: 20081201
  18. ROPINIROLE [Suspect]
     Indication: PARKINSON'S DISEASE
     Dosage: 2 MG; HS;
     Dates: start: 20081201

REACTIONS (17)
  - ABNORMAL DREAMS [None]
  - ABNORMAL SLEEP-RELATED EVENT [None]
  - AGGRESSION [None]
  - BRADYKINESIA [None]
  - BRUXISM [None]
  - CEREBRAL VENTRICLE DILATATION [None]
  - DYSKINESIA [None]
  - DYSTONIA [None]
  - FALL [None]
  - GAIT DISTURBANCE [None]
  - GAMBLING [None]
  - HALLUCINATIONS, MIXED [None]
  - HYPOAESTHESIA [None]
  - INSOMNIA [None]
  - MUSCLE SPASMS [None]
  - RAPID EYE MOVEMENTS SLEEP ABNORMAL [None]
  - TREMOR [None]
